FAERS Safety Report 20365799 (Version 1)
Quarter: 2022Q1

REPORT INFORMATION
  Report Type: Spontaneous
  Country: TR (occurrence: TR)
  Receive Date: 20220123
  Receipt Date: 20220123
  Transmission Date: 20220423
  Serious: Yes (Other)
  Sender: FDA-Public Use
  Company Number: TR-LUPIN PHARMACEUTICALS INC.-2022-00598

PATIENT
  Age: 63 Year
  Sex: Male

DRUGS (5)
  1. TRIAMCINOLONE ACETONIDE [Suspect]
     Active Substance: TRIAMCINOLONE ACETONIDE
     Indication: Cystoid macular oedema
     Dosage: UNK, SUB-TENON TRIAMCINOLONE INJECTION
     Route: 031
  2. NEVANAC [Suspect]
     Active Substance: NEPAFENAC
     Indication: Cystoid macular oedema
     Dosage: THREE TIME DAILY
     Route: 061
  3. MAXIDEX [Suspect]
     Active Substance: DEXAMETHASONE
     Indication: Cystoid macular oedema
     Dosage: THREE TIME DAILY
     Route: 061
  4. BEVACIZUMAB [Concomitant]
     Active Substance: BEVACIZUMAB
     Indication: Cystoid macular oedema
     Dosage: 2.5 MILLIGRAM, INJECTED INTO THE INFERIOR-TEMPORAL SUBCONJUNCTIVAL SPACE WITH A 26-GAUGE NEEDLE WHIL
     Route: 057
  5. ALCAINE [Concomitant]
     Active Substance: PROPARACAINE HYDROCHLORIDE
     Indication: Anaesthesia
     Dosage: UNK
     Route: 061

REACTIONS (2)
  - Drug ineffective [Unknown]
  - Off label use [None]
